FAERS Safety Report 20362528 (Version 4)
Quarter: 2022Q2

REPORT INFORMATION
  Report Type: Report from Study
  Country: GB (occurrence: GB)
  Receive Date: 20220121
  Receipt Date: 20220502
  Transmission Date: 20220720
  Serious: Yes (Death, Hospitalization)
  Sender: FDA-Public Use
  Company Number: GB-ROCHE-2844793

PATIENT
  Age: 53 Year
  Sex: Female

DRUGS (47)
  1. CAPECITABINE [Suspect]
     Active Substance: CAPECITABINE
     Indication: Breast cancer metastatic
     Dosage: 1650 MILLIGRAM, BID (START DATE: 11-DEC-2020 )
     Route: 048
     Dates: end: 20210120
  2. CAPECITABINE [Suspect]
     Active Substance: CAPECITABINE
     Dosage: 1300 MILLIGRAM, BID
     Route: 048
     Dates: start: 20210121, end: 202106
  3. TRASTUZUMAB [Suspect]
     Active Substance: TRASTUZUMAB
     Indication: Breast cancer metastatic
     Dosage: 600 MILLIGRAM, Q3W
     Route: 058
     Dates: start: 20160506, end: 20180122
  4. NERATINIB [Suspect]
     Active Substance: NERATINIB
     Indication: Breast cancer metastatic
     Dosage: 160 MILLIGRAM, QD (START DATE: 21-JAN-2021)
     Route: 048
     Dates: end: 20210201
  5. NERATINIB [Suspect]
     Active Substance: NERATINIB
     Dosage: 200 MILLIGRAM, QD
     Route: 048
     Dates: start: 20210202, end: 20210224
  6. NERATINIB [Suspect]
     Active Substance: NERATINIB
     Dosage: 240 MILLIGRAM, QD
     Route: 048
     Dates: start: 20210225, end: 202104
  7. NERATINIB [Suspect]
     Active Substance: NERATINIB
     Dosage: 200 MILLIGRAM, QD
     Route: 048
     Dates: start: 20210514, end: 2021
  8. NERATINIB [Suspect]
     Active Substance: NERATINIB
     Dosage: 160 MILLIGRAM
     Route: 048
     Dates: start: 202105, end: 202106
  9. TRASTUZUMAB DERUXTECAN [Suspect]
     Active Substance: TRASTUZUMAB DERUXTECAN
     Indication: Breast cancer metastatic
     Dosage: 240 MILLIGRAM, Q3W (START DATE: 22-OCT-2021)
     Route: 042
     Dates: end: 20211202
  10. ADO-TRASTUZUMAB EMTANSINE [Suspect]
     Active Substance: ADO-TRASTUZUMAB EMTANSINE
     Indication: Breast cancer metastatic
     Dosage: 220 MILLIGRAM, Q3W
     Route: 042
     Dates: start: 20180309, end: 20201106
  11. CEFUROXIME [Concomitant]
     Active Substance: CEFUROXIME
     Dosage: 1.5 MILLIGRAM
     Route: 042
     Dates: start: 20180212, end: 20180212
  12. SODIUM FLUORIDE [Concomitant]
     Active Substance: SODIUM FLUORIDE
     Dosage: UNK, TID (START DATE:02-FEB-2021)
     Route: 048
  13. CYCLIZINE [Concomitant]
     Active Substance: CYCLIZINE
     Dosage: 50 MILLIGRAM
     Route: 042
     Dates: start: 20180212, end: 20180212
  14. DEXAMETHASONE [Concomitant]
     Active Substance: DEXAMETHASONE
     Dosage: 4 MILLIGRAM, BID
     Route: 048
     Dates: start: 20180212, end: 20180213
  15. DEXAMETHASONE [Concomitant]
     Active Substance: DEXAMETHASONE
     Dosage: 4 MILLIGRAM
     Route: 048
     Dates: start: 20180214, end: 20180214
  16. DEXAMETHASONE [Concomitant]
     Active Substance: DEXAMETHASONE
     Dosage: 2 MILLIGRAM
     Route: 048
     Dates: start: 201802, end: 201803
  17. DEXAMETHASONE [Concomitant]
     Active Substance: DEXAMETHASONE
     Dosage: 3.3 MILLIGRAM
     Route: 065
     Dates: start: 20211012, end: 20211012
  18. DEXAMETHASONE [Concomitant]
     Active Substance: DEXAMETHASONE
     Dosage: 6.6 MILLIGRAM, BID
     Route: 065
     Dates: start: 20211013, end: 20211013
  19. DEXAMETHASONE [Concomitant]
     Active Substance: DEXAMETHASONE
     Dosage: 6 MILLIGRAM
     Route: 048
     Dates: start: 20211014
  20. DEXTROSE [Concomitant]
     Active Substance: DEXTROSE
     Dosage: 1000 MILLILITER
     Route: 042
     Dates: start: 20211014, end: 20211014
  21. LOPERAMIDE [Concomitant]
     Active Substance: LOPERAMIDE
     Dosage: 2 MILLIGRAM (START DATE: 11-DEC-2020)
     Route: 048
  22. METOCLOPRAMIDE [Concomitant]
     Active Substance: METOCLOPRAMIDE
     Dosage: 10 MILLIGRAM (START DATE: 11-DEC-2020 )
     Route: 048
  23. MORPHINE [Concomitant]
     Active Substance: MORPHINE
     Dosage: 2 MILLIGRAM, TID
     Route: 042
     Dates: start: 20180212, end: 20180212
  24. MORPHINE SULFATE [Concomitant]
     Active Substance: MORPHINE SULFATE
     Dosage: 2 MILLIGRAM (START DATE:15-OCT-2021)
     Route: 048
  25. SODIUM CHLORIDE [Concomitant]
     Active Substance: SODIUM CHLORIDE
     Dosage: 1000 MILLILITER
     Route: 042
     Dates: start: 20180212, end: 20180212
  26. SODIUM CHLORIDE [Concomitant]
     Active Substance: SODIUM CHLORIDE
     Dosage: 2000 MILLILITER
     Route: 042
     Dates: start: 20211012, end: 20211013
  27. OMEPRAZOLE [Concomitant]
     Active Substance: OMEPRAZOLE
     Dosage: 20 MILLIGRAM, QD
     Route: 048
     Dates: start: 20180212, end: 20180214
  28. OMEPRAZOLE [Concomitant]
     Active Substance: OMEPRAZOLE
     Dosage: 40 MILLIGRAM
     Route: 048
     Dates: start: 20211014
  29. OMEPRAZOLE [Concomitant]
     Active Substance: OMEPRAZOLE
     Dosage: 40 MILLIGRAM (START DATE: 12-OCT-2021)
     Route: 042
  30. ACETAMINOPHEN [Concomitant]
     Active Substance: ACETAMINOPHEN
     Dosage: 1000 MILLIGRAM, QID
     Route: 048
     Dates: start: 20180212, end: 20180214
  31. ACETAMINOPHEN [Concomitant]
     Active Substance: ACETAMINOPHEN
     Dosage: UNK
     Route: 048
     Dates: start: 202110, end: 202110
  32. ACETAMINOPHEN [Concomitant]
     Active Substance: ACETAMINOPHEN
     Dosage: 1000 MILLIGRAM
     Route: 042
     Dates: start: 20180212, end: 20180212
  33. MAGNESIUM CHLORIDE [Concomitant]
     Active Substance: MAGNESIUM CHLORIDE
     Dosage: 1000 MILLILITER
     Route: 042
     Dates: start: 20180212, end: 20180212
  34. POTASSIUM CHLORIDE [Concomitant]
     Active Substance: POTASSIUM CHLORIDE
     Dosage: 1000 MILLILITER
     Route: 042
     Dates: start: 20180212, end: 20180212
  35. SODIUM ACETATE [Concomitant]
     Active Substance: SODIUM ACETATE
     Dosage: 1000 MILLILITER
     Route: 042
     Dates: start: 20180212, end: 20180212
  36. SODIUM GLUCONATE [Concomitant]
     Active Substance: SODIUM GLUCONATE
     Dosage: 1000 MILLILITER
     Route: 042
     Dates: start: 20180212, end: 20180212
  37. ZOLEDRONIC ACID [Concomitant]
     Active Substance: ZOLEDRONIC ACID
     Dosage: 4 MILLIGRAM
     Route: 042
     Dates: start: 20170102, end: 20170102
  38. FLUCLOXACILLIN [Concomitant]
     Active Substance: FLUCLOXACILLIN
     Dosage: 500 MILLIGRAM (START DATE: 08-DEC-2021)
     Route: 048
     Dates: end: 20211213
  39. GENTAMICIN [Concomitant]
     Active Substance: GENTAMICIN
     Dosage: 240 MILLIGRAM (START DATE: 30-NOV-2021)
     Route: 042
     Dates: end: 20211130
  40. POLYETHYLENE GLYCOL 3350\POTASSIUM CHLORIDE\SODIUM BICARBONATE\SODIUM [Concomitant]
     Active Substance: POLYETHYLENE GLYCOL 3350\POTASSIUM CHLORIDE\SODIUM BICARBONATE\SODIUM CHLORIDE
     Dosage: UNK (START DATE: 09-DEC-2021)
     Route: 048
     Dates: end: 20211214
  41. METHYLPREDNISOLONE SODIUM SUCCINATE [Concomitant]
     Active Substance: METHYLPREDNISOLONE SODIUM SUCCINATE
     Dosage: 86 MILLIGRAM (START DATE: 12-DEC-2021)
     Route: 042
     Dates: end: 20211213
  42. MIDAZOLAM [Concomitant]
     Active Substance: MIDAZOLAM
     Dosage: 2 MILLIGRAM (START DATE:08-DEC-2021)
     Route: 058
     Dates: end: 20211214
  43. MIDAZOLAM [Concomitant]
     Active Substance: MIDAZOLAM
     Dosage: 10 MILLIGRAM
     Route: 058
     Dates: start: 20211213, end: 20211214
  44. PIPERACILLIN AND TAZOBACTAM [Concomitant]
     Active Substance: PIPERACILLIN SODIUM\TAZOBACTAM SODIUM
     Dosage: 4.5 GRAM (START DATE: 30-NOV-2021)
     Route: 042
     Dates: end: 20211130
  45. BUDESONIDE [Concomitant]
     Active Substance: BUDESONIDE
     Dosage: UNK
  46. ENOXAPARIN SODIUM [Concomitant]
     Active Substance: ENOXAPARIN SODIUM
     Dosage: UNK
  47. ONDANSETRON [Concomitant]
     Active Substance: ONDANSETRON
     Dosage: UNK

REACTIONS (5)
  - Pulmonary embolism [Fatal]
  - Pneumonitis [Fatal]
  - Somnolence [Recovered/Resolved with Sequelae]
  - Diarrhoea [Recovered/Resolved]
  - Gamma-glutamyltransferase increased [Not Recovered/Not Resolved]

NARRATIVE: CASE EVENT DATE: 20181220
